FAERS Safety Report 23940319 (Version 1)
Quarter: 2024Q2

REPORT INFORMATION
  Report Type: Spontaneous
  Country: PT (occurrence: PT)
  Receive Date: 20240605
  Receipt Date: 20240605
  Transmission Date: 20240716
  Serious: Yes (Hospitalization)
  Sender: FDA-Public Use
  Company Number: PT-TEVA-VS-3205526

PATIENT
  Age: 73 Year
  Sex: Male

DRUGS (2)
  1. PERINDOPRIL [Suspect]
     Active Substance: PERINDOPRIL
     Indication: Blood pressure abnormal
     Route: 065
  2. IBUPROFEN [Suspect]
     Active Substance: IBUPROFEN
     Indication: Odynophagia
     Route: 065

REACTIONS (1)
  - Angioedema [Recovering/Resolving]
